FAERS Safety Report 5037612-0 (Version None)
Quarter: 2006Q2

REPORT INFORMATION
  Report Type: 
  Country: None (occurrence: None)
  Receive Date: 20060608
  Receipt Date: 20060308
  Transmission Date: 20061013
  Serious: Yes (Hospitalization)
  Sender: FDA-Public Use
  Company Number: DE-2006-004316

PATIENT
  Age: 55 Year
  Sex: Male
  Weight: 80 kg

DRUGS (3)
  1. QUADRAMET [Suspect]
     Indication: METASTASES TO BONE
     Dosage: 3.26 BQ, 1 DOSE, INTRAVEOUS
     Route: 042
     Dates: start: 20060215, end: 20060215
  2. OPIOIDS [Concomitant]
  3. NSAID'S [Concomitant]

REACTIONS (2)
  - ARTHRALGIA [None]
  - DIFFICULTY IN WALKING [None]
